FAERS Safety Report 5487647-9 (Version None)
Quarter: 2007Q4

REPORT INFORMATION
  Report Type: 
  Country: None (occurrence: None)
  Receive Date: 20071012
  Receipt Date: 20071012
  Transmission Date: 20080405
  Serious: Yes (Other)
  Sender: FDA-Public Use
  Company Number: None

PATIENT
  Age: 53 Year
  Sex: Female
  Weight: 56.246 kg

DRUGS (1)
  1. PRAVASTATIN [Suspect]
     Indication: BLOOD CHOLESTEROL INCREASED
     Dosage: 1 TABLET ONCE AT BEDTIME PO
     Route: 048
     Dates: start: 20071011, end: 20071011

REACTIONS (5)
  - DYSPNOEA [None]
  - HYPOAESTHESIA [None]
  - NASAL DISORDER [None]
  - POLLAKIURIA [None]
  - URINE OUTPUT INCREASED [None]
